FAERS Safety Report 21119030 (Version 1)
Quarter: 2022Q3

REPORT INFORMATION
  Report Type: Report from Study
  Country: MX (occurrence: MX)
  Receive Date: 20220722
  Receipt Date: 20220722
  Transmission Date: 20221026
  Serious: Yes (Other)
  Sender: FDA-Public Use
  Company Number: MX-NOVARTISPH-NVSC2022MX166146

PATIENT
  Sex: Female

DRUGS (2)
  1. METFORMIN HYDROCHLORIDE\VILDAGLIPTIN [Suspect]
     Active Substance: METFORMIN HYDROCHLORIDE\VILDAGLIPTIN
     Indication: Diabetes mellitus
     Dosage: 1 DOSAGE FORM, QD, STATE DATE: 2016 OR 2017
     Route: 048
  2. METFORMIN HYDROCHLORIDE\VILDAGLIPTIN [Suspect]
     Active Substance: METFORMIN HYDROCHLORIDE\VILDAGLIPTIN
     Dosage: 1 DOSAGE FORM, BID (ONE IN THE MORNING AND ONE IN THE NIGHT)
     Route: 048

REACTIONS (3)
  - Throat cancer [Not Recovered/Not Resolved]
  - Speech disorder [Not Recovered/Not Resolved]
  - Illness [Not Recovered/Not Resolved]

NARRATIVE: CASE EVENT DATE: 20200101
